FAERS Safety Report 23856659 (Version 4)
Quarter: 2025Q1

REPORT INFORMATION
  Report Type: Spontaneous
  Country: JP (occurrence: JP)
  Receive Date: 20240515
  Receipt Date: 20250212
  Transmission Date: 20250409
  Serious: Yes (Other)
  Sender: AMGEN
  Company Number: JP-AMGEN-JPNSP2024094899

PATIENT
  Age: 88 Year
  Sex: Female
  Weight: 65 kg

DRUGS (14)
  1. EVENITY [Suspect]
     Active Substance: ROMOSOZUMAB-AQQG
     Indication: Osteoporosis
     Dosage: 210 MILLIGRAM, QMO
     Route: 058
     Dates: start: 20230412, end: 20240206
  2. ASPIRIN\LANSOPRAZOLE [Concomitant]
     Active Substance: ASPIRIN\LANSOPRAZOLE
     Indication: Transient ischaemic attack
     Dosage: UNK UNK, QD(1 TABLET
     Dates: start: 20190816
  3. DONEPEZIL HYDROCHLORIDE [Concomitant]
     Active Substance: DONEPEZIL HYDROCHLORIDE
     Indication: Dementia Alzheimer^s type
     Dosage: 5 MILLIGRAM, QD
     Dates: start: 20150501
  4. MEMANTINE HYDROCHLORIDE [Concomitant]
     Active Substance: MEMANTINE HYDROCHLORIDE
     Indication: Dementia Alzheimer^s type
     Dosage: 5 MILLIGRAM, QD
     Dates: start: 20190301
  5. NICERGOLINE [Concomitant]
     Active Substance: NICERGOLINE
     Indication: Dementia Alzheimer^s type
     Dosage: 5 MILLIGRAM, QD
     Dates: start: 20220107
  6. APIDRA [Concomitant]
     Active Substance: INSULIN GLULISINE
     Indication: Type 1 diabetes mellitus
     Dosage: UNK UNK, BID(10 UNITS DAILY)
     Route: 058
     Dates: start: 2015
  7. INSULIN GLARGINE [Concomitant]
     Active Substance: INSULIN GLARGINE
     Indication: Type 1 diabetes mellitus
     Dosage: UNK UNK, QD ((10 UNITS DAILY))
     Route: 058
     Dates: start: 20161202
  8. CANDESARTAN [Concomitant]
     Active Substance: CANDESARTAN
     Indication: Hypertension
     Dosage: 4 MILLIGRAM, QD
     Dates: start: 20181012
  9. PEMAFIBRATE [Concomitant]
     Active Substance: PEMAFIBRATE
     Indication: Dyslipidaemia
     Dosage: 0.1 MILLIGRAM, QD
     Dates: start: 20201117
  10. TENELIGLIPTIN [Concomitant]
     Active Substance: TENELIGLIPTIN
     Indication: Type 1 diabetes mellitus
     Dosage: 20 MILLIGRAM, QD
     Route: 065
     Dates: start: 20221025
  11. ATORVASTATIN [Concomitant]
     Active Substance: ATORVASTATIN
     Indication: Dyslipidaemia
     Dosage: 10 MILLIGRAM, QD
     Dates: start: 20170804
  12. AMLODIPINE [Concomitant]
     Active Substance: AMLODIPINE BESYLATE
     Indication: Hypertension
     Dosage: 2.5 MILLIGRAM, QD
     Dates: start: 20181012
  13. REPAGLINIDE [Concomitant]
     Active Substance: REPAGLINIDE
     Indication: Type 1 diabetes mellitus
     Dosage: 0.125 MILLIGRAM, QD
     Dates: start: 20221025
  14. ALFACALCIDOL [Concomitant]
     Active Substance: ALFACALCIDOL
     Indication: Osteoporosis
     Dosage: 0.5 MICROGRAM, QD
     Dates: start: 20230412

REACTIONS (3)
  - Cerebral artery stenosis [Recovered/Resolved]
  - Hypotension [Recovered/Resolved]
  - Urinary tract infection [Recovered/Resolved]

NARRATIVE: CASE EVENT DATE: 20240222
